FAERS Safety Report 5652200-0 (Version None)
Quarter: 2008Q1

REPORT INFORMATION
  Report Type: 
  Country: None (occurrence: None)
  Receive Date: 20080131
  Receipt Date: 20071102
  Transmission Date: 20080703
  Serious: No
  Sender: FDA-Public Use
  Company Number: US200711000912

PATIENT

DRUGS (2)
  1. BYETTA [Suspect]
  2. . [Concomitant]

REACTIONS (1)
  - WEIGHT CONTROL [None]
